FAERS Safety Report 7517922-5 (Version None)
Quarter: 2011Q2

REPORT INFORMATION
  Report Type: 
  Country: None (occurrence: None)
  Receive Date: 20110527
  Receipt Date: 20110527
  Transmission Date: 20111010
  Serious: Yes (Other)
  Sender: FDA-Public Use
  Company Number: None

PATIENT
  Age: 50 Year
  Sex: Female
  Weight: 71.2147 kg

DRUGS (2)
  1. CELLCEPT [Suspect]
     Indication: LUNG TRANSPLANT
  2. PROGRAF [Suspect]

REACTIONS (3)
  - HYPOAESTHESIA [None]
  - GAIT DISTURBANCE [None]
  - ABASIA [None]
